FAERS Safety Report 4753047-X (Version None)
Quarter: 2005Q3

REPORT INFORMATION
  Report Type: 
  Country: None (occurrence: None)
  Receive Date: 20050826
  Receipt Date: 20050419
  Transmission Date: 20060218
  Serious: Yes (Hospitalization, Other)
  Sender: FDA-Public Use
  Company Number: US-MERCK-0504USA03740

PATIENT
  Age: 75 Year
  Sex: Female
  Weight: 68 kg

DRUGS (17)
  1. BUMEX [Concomitant]
     Indication: POLYURIA
     Route: 065
     Dates: start: 20000519
  2. VIOXX [Suspect]
     Indication: BACK PAIN
     Route: 048
     Dates: start: 20010123, end: 20010327
  3. VIOXX [Suspect]
     Route: 048
     Dates: start: 20010328, end: 20010430
  4. VIOXX [Suspect]
     Route: 048
     Dates: start: 20010501, end: 20010505
  5. VIOXX [Suspect]
     Route: 048
     Dates: start: 20010506, end: 20020415
  6. PLAVIX [Concomitant]
     Route: 065
     Dates: start: 20000513, end: 20050325
  7. ZOCOR [Concomitant]
     Route: 048
     Dates: start: 19980813, end: 20040617
  8. AMITRIPTYLINE HYDROCHLORIDE [Concomitant]
     Indication: DEPRESSION
     Route: 065
     Dates: start: 19980108
  9. DOXEPIN HYDROCHLORIDE [Concomitant]
     Indication: DEPRESSION
     Route: 065
     Dates: start: 19980101
  10. ESTRADIOL [Concomitant]
     Indication: HORMONE REPLACEMENT THERAPY
     Route: 065
     Dates: start: 19980119
  11. CLARITIN [Concomitant]
     Indication: HYPERSENSITIVITY
     Route: 065
     Dates: start: 20010329
  12. ACETAMINOPHEN AND HYDROCODONE BITARTRATE [Concomitant]
     Indication: ANALGESIC EFFECT
     Route: 065
  13. HYDROXYZINE HYDROCHLORIDE [Concomitant]
     Indication: DEPRESSION
     Route: 065
     Dates: start: 19980101
  14. LANOXIN [Concomitant]
     Route: 065
     Dates: start: 20000705
  15. MONOPRIL [Concomitant]
     Indication: HYPERTENSION
     Route: 065
     Dates: start: 20000711
  16. POTASSIUM CHLORIDE [Concomitant]
     Route: 065
     Dates: start: 20000513
  17. SYNTHROID [Concomitant]
     Indication: THYROID DISORDER
     Route: 065
     Dates: start: 19980101, end: 20040714

REACTIONS (65)
  - ABDOMINAL DISTENSION [None]
  - ANAEMIA [None]
  - ARTHRALGIA [None]
  - BACK PAIN [None]
  - BLOOD CREATININE INCREASED [None]
  - BLOOD UREA INCREASED [None]
  - BONE SCAN ABNORMAL [None]
  - BUNDLE BRANCH BLOCK LEFT [None]
  - CARDIAC FAILURE CONGESTIVE [None]
  - CARDIOACTIVE DRUG LEVEL INCREASED [None]
  - CEREBROVASCULAR ACCIDENT [None]
  - CONGESTIVE CARDIOMYOPATHY [None]
  - CONSTIPATION [None]
  - CYST [None]
  - DEHYDRATION [None]
  - DIPLOPIA [None]
  - DIVERTICULITIS [None]
  - DIZZINESS [None]
  - DYSPEPSIA [None]
  - DYSPHAGIA [None]
  - GALLBLADDER DISORDER [None]
  - GALLOP RHYTHM PRESENT [None]
  - GASTRIC DISORDER [None]
  - GASTRIC PH DECREASED [None]
  - GASTROENTERITIS [None]
  - HEADACHE [None]
  - HEPATIC STEATOSIS [None]
  - HIATUS HERNIA [None]
  - HYPERKALAEMIA [None]
  - HYPERTENSION [None]
  - HYPOAESTHESIA [None]
  - HYPOTENSION [None]
  - HYPOXIA [None]
  - INCREASED TENDENCY TO BRUISE [None]
  - ISCHAEMIC CARDIOMYOPATHY [None]
  - LABYRINTHITIS [None]
  - LIPOMA [None]
  - LIVER DISORDER [None]
  - MALAISE [None]
  - MELAENA [None]
  - MICTURITION URGENCY [None]
  - MITRAL VALVE INCOMPETENCE [None]
  - MYOCARDIAL INFARCTION [None]
  - MYOCARDIAL ISCHAEMIA [None]
  - NAUSEA [None]
  - NERVOUSNESS [None]
  - NIGHT SWEATS [None]
  - OBSTRUCTIVE AIRWAYS DISORDER [None]
  - PERIPHERAL COLDNESS [None]
  - PIGMENTED NAEVUS [None]
  - POST PROCEDURAL COMPLICATION [None]
  - POSTOPERATIVE ILEUS [None]
  - RENAL FAILURE [None]
  - SEBORRHOEIC KERATOSIS [None]
  - SICK SINUS SYNDROME [None]
  - SINUS CONGESTION [None]
  - SKIN NODULE [None]
  - TINNITUS [None]
  - ULCER [None]
  - URINARY TRACT INFECTION [None]
  - VENTRICULAR DYSFUNCTION [None]
  - VENTRICULAR TACHYCARDIA [None]
  - VERTIGO [None]
  - VISION BLURRED [None]
  - WEIGHT DECREASED [None]
